FAERS Safety Report 9349383 (Version 1)
Quarter: 2013Q2

REPORT INFORMATION
  Report Type: Report from Study
  Country: DE (occurrence: DE)
  Receive Date: 20130614
  Receipt Date: 20130614
  Transmission Date: 20140414
  Serious: Yes (Hospitalization, Other)
  Sender: FDA-Public Use
  Company Number: DE-ROCHE-1236431

PATIENT
  Sex: Female

DRUGS (3)
  1. LUCENTIS [Suspect]
     Indication: AGE-RELATED MACULAR DEGENERATION
     Route: 050
     Dates: start: 20120615
  2. LUCENTIS [Suspect]
     Route: 050
     Dates: start: 20120720
  3. LUCENTIS [Suspect]
     Route: 050
     Dates: start: 20130301

REACTIONS (4)
  - Pancreatitis [Recovered/Resolved]
  - Cholecystitis [Recovered/Resolved]
  - Retinal fibrosis [Not Recovered/Not Resolved]
  - Retinal scar [Not Recovered/Not Resolved]
